FAERS Safety Report 5914781-9 (Version None)
Quarter: 2008Q4

REPORT INFORMATION
  Report Type: 
  Country: None (occurrence: None)
  Receive Date: 20081010
  Receipt Date: 20080929
  Transmission Date: 20090506
  Serious: Yes (Other)
  Sender: FDA-Public Use
  Company Number: US-ROCHE-524119

PATIENT
  Age: 23 Year
  Sex: Female
  Weight: 122.9 kg

DRUGS (2)
  1. INVIRASE [Suspect]
     Indication: ACUTE HIV INFECTION
     Dosage: INDICATION REPORTED AS: ASYMPTOMATIC ACUTE (PRIMARY) HIV OR PGL.
     Route: 048
     Dates: start: 20071004, end: 20071128
  2. EPZICOM [Suspect]
     Indication: ACUTE HIV INFECTION
     Dosage: TOTAL DAILY DOSE:  600MG/300MG. INDICATION REPORTED AS: ASYMPTOMATIC ACUTE (PRIMARY) HIV OR PGL.
     Route: 048
     Dates: start: 20071004, end: 20071128

REACTIONS (2)
  - ABORTION SPONTANEOUS [None]
  - COMPLICATION OF PREGNANCY [None]
